FAERS Safety Report 21331985 (Version 1)
Quarter: 2022Q3

REPORT INFORMATION
  Report Type: Spontaneous
  Country: US (occurrence: None)
  Receive Date: 20220913
  Receipt Date: 20220913
  Transmission Date: 20221026
  Serious: Yes (Death)
  Sender: FDA-Public Use
  Company Number: None

PATIENT
  Age: 28 Year
  Sex: Male

DRUGS (2)
  1. TEMOZOLOMIDE [Suspect]
     Active Substance: TEMOZOLOMIDE
     Indication: Ewing^s sarcoma
     Dosage: FREQUENCY : DAILY;?
     Route: 048
     Dates: start: 20220813
  2. TEMOZOLOMIDE [Suspect]
     Active Substance: TEMOZOLOMIDE
     Indication: Ewing^s sarcoma
     Dosage: FREQUENCY : DAILY;?
     Route: 048
     Dates: start: 20220813

REACTIONS (5)
  - Disease progression [None]
  - Ewing^s sarcoma recurrent [None]
  - Back pain [None]
  - Constipation [None]
  - Metastases to bone [None]

NARRATIVE: CASE EVENT DATE: 20220913
